FAERS Safety Report 10344715 (Version 2)
Quarter: 2014Q3

REPORT INFORMATION
  Report Type: Spontaneous
  Country: IT (occurrence: IT)
  Receive Date: 20140728
  Receipt Date: 20140731
  Transmission Date: 20150326
  Serious: Yes (Hospitalization)
  Sender: FDA-Public Use
  Company Number: IT-RANBAXY-2014RR-83810

PATIENT
  Age: 17 Year
  Sex: Female

DRUGS (1)
  1. CLARITHROMYCIN. [Suspect]
     Active Substance: CLARITHROMYCIN
     Indication: DRUG ABUSE
     Dosage: 1250 MG TOTAL
     Route: 048
     Dates: start: 20140210, end: 20140210

REACTIONS (3)
  - Dysgeusia [Unknown]
  - Drug abuse [Unknown]
  - Vomiting [Unknown]

NARRATIVE: CASE EVENT DATE: 20140210
